FAERS Safety Report 12255502 (Version 1)
Quarter: 2016Q2

REPORT INFORMATION
  Report Type: Spontaneous
  Country: US (occurrence: US)
  Receive Date: 20160412
  Receipt Date: 20160412
  Transmission Date: 20160815
  Serious: Yes (Other)
  Sender: FDA-Public Use
  Company Number: US-ROCHE-1739781

PATIENT
  Sex: Female

DRUGS (1)
  1. TAMIFLU [Suspect]
     Active Substance: OSELTAMIVIR PHOSPHATE
     Indication: INFLUENZA
     Dosage: TWICE DAILY FOR 5 DAYS
     Route: 048
     Dates: start: 20160322, end: 20160322

REACTIONS (12)
  - Emotional distress [Recovered/Resolved]
  - Pyrexia [Unknown]
  - Crying [Recovered/Resolved]
  - Anxiety [Recovered/Resolved]
  - Tachyphrenia [Recovered/Resolved]
  - Pain [Unknown]
  - Abnormal behaviour [Recovered/Resolved]
  - Logorrhoea [Recovered/Resolved]
  - Hallucination [Recovered/Resolved]
  - Cough [Unknown]
  - Restlessness [Recovered/Resolved]
  - Feeling cold [Unknown]
